FAERS Safety Report 6585612-1 (Version None)
Quarter: 2010Q1

REPORT INFORMATION
  Report Type: 
  Country: None (occurrence: None)
  Receive Date: 20100217
  Receipt Date: 20091116
  Transmission Date: 20100710
  Serious: Yes (Other)
  Sender: FDA-Public Use
  Company Number: US-BAYER-200920883NA

PATIENT
  Age: 66 Year
  Sex: Female
  Weight: 61 kg

DRUGS (26)
  1. MAGNEVIST [Suspect]
     Indication: NUCLEAR MAGNETIC RESONANCE IMAGING
     Dosage: AS USED: 40 ML
     Route: 042
     Dates: start: 20001130, end: 20001130
  2. MAGNEVIST [Suspect]
     Dosage: AS USED: 40 ML
     Route: 042
     Dates: start: 20020903, end: 20020903
  3. MAGNEVIST [Suspect]
     Route: 042
     Dates: start: 20040512, end: 20040512
  4. MAGNEVIST [Suspect]
     Dates: start: 20060620, end: 20060620
  5. MAGNEVIST [Suspect]
     Dates: start: 20020822, end: 20020822
  6. OMNISCAN [Suspect]
     Indication: NUCLEAR MAGNETIC RESONANCE IMAGING ABDOMINAL
     Route: 042
     Dates: start: 20040615, end: 20040615
  7. OMNISCAN [Suspect]
     Route: 042
     Dates: start: 20061108, end: 20061108
  8. CONTRAST [Suspect]
     Indication: NUCLEAR MAGNETIC RESONANCE IMAGING ABDOMINAL
     Dates: start: 20040908, end: 20040908
  9. CONTRAST [Suspect]
     Dates: start: 20070413, end: 20070413
  10. CONTRAST [Suspect]
     Dates: start: 20040615, end: 20040615
  11. CONTRAST [Suspect]
     Dates: start: 20040909, end: 20040909
  12. PROHANCE [Suspect]
  13. MULTIHANCE [Suspect]
  14. MACROBID [Concomitant]
  15. PLAQUENIL [Concomitant]
  16. PLAVIX [Concomitant]
  17. ASPIRIN [Concomitant]
  18. TRENTAL [Concomitant]
     Dosage: TOTAL DAILY DOSE: 800 MG  UNIT DOSE: 400 MG
     Route: 048
  19. ZESTRIL [Concomitant]
     Dosage: AS USED: 30 MG
  20. PROCARDIA XL [Concomitant]
     Dosage: AS USED: 30 MG
  21. LASIX [Concomitant]
     Dosage: AS USED: 20 MG
  22. INDERAL [Concomitant]
     Dosage: AS USED: 60 MG
  23. LIPITOR [Concomitant]
     Dosage: AS USED: 10 MG
  24. THALIDOMIDE [Concomitant]
     Dosage: TOTAL DAILY DOSE: 100 MG
     Route: 048
  25. PREDNISONE [Concomitant]
     Dosage: TOTAL DAILY DOSE: 60 MG
     Route: 048
  26. FERRO-SEQUELS [Concomitant]

REACTIONS (20)
  - DRY SKIN [None]
  - ECCHYMOSIS [None]
  - FIBROSIS [None]
  - MOBILITY DECREASED [None]
  - MUSCLE FIBROSIS [None]
  - MUSCLE SPASMS [None]
  - MUSCLE TIGHTNESS [None]
  - MYALGIA [None]
  - NEPHROGENIC SYSTEMIC FIBROSIS [None]
  - OEDEMA [None]
  - PRURITUS [None]
  - PULSE ABNORMAL [None]
  - SCLERODERMA [None]
  - SKIN BURNING SENSATION [None]
  - SKIN EXFOLIATION [None]
  - SKIN FISSURES [None]
  - SKIN HYPERPIGMENTATION [None]
  - SKIN HYPERTROPHY [None]
  - SKIN INDURATION [None]
  - SKIN TIGHTNESS [None]
